FAERS Safety Report 7350187-6 (Version None)
Quarter: 2011Q1

REPORT INFORMATION
  Report Type: 
  Country: None (occurrence: None)
  Receive Date: 20110314
  Receipt Date: 20110308
  Transmission Date: 20110831
  Serious: No
  Sender: FDA-Public Use
  Company Number: B0704387A

PATIENT
  Age: 95 Year
  Sex: Female

DRUGS (2)
  1. LAMICTAL [Suspect]
     Indication: EPILEPSY
     Dosage: 150MG PER DAY
     Route: 048
  2. DEPAKENE [Concomitant]
     Route: 048

REACTIONS (2)
  - SKIN DISORDER [None]
  - RASH GENERALISED [None]
